FAERS Safety Report 4416833-1 (Version None)
Quarter: 2004Q2

REPORT INFORMATION
  Report Type: 
  Country: None (occurrence: None)
  Receive Date: 20040628
  Receipt Date: 20040325
  Transmission Date: 20050107
  Serious: No
  Sender: FDA-Public Use
  Company Number: USA-2004-0014066

PATIENT

DRUGS (1)
  1. SPECTRACEF [Suspect]
     Indication: PHARYNGITIS STREPTOCOCCAL
     Dosage: 200 MG BID

REACTIONS (1)
  - ABDOMINAL DISCOMFORT [None]
